FAERS Safety Report 4558556-4 (Version None)
Quarter: 2005Q1

REPORT INFORMATION
  Report Type: 
  Country: None (occurrence: None)
  Receive Date: 20050121
  Receipt Date: 20050112
  Transmission Date: 20050727
  Serious: Yes (Life-Threatening, Hospitalization)
  Sender: FDA-Public Use
  Company Number: SE-BRISTOL-MYERS SQUIBB COMPANY-12824280

PATIENT
  Age: 70 Year
  Sex: Female

DRUGS (6)
  1. GLUCOPHAGE [Suspect]
     Indication: DIABETES MELLITUS NON-INSULIN-DEPENDENT
     Route: 048
     Dates: start: 20010101, end: 20040331
  2. INDERAL [Concomitant]
  3. PRAVACHOL [Concomitant]
     Route: 048
  4. AMARYL [Concomitant]
     Route: 048
  5. COAPROVEL [Concomitant]
     Route: 048
  6. LIPANTHYL [Concomitant]
     Route: 048

REACTIONS (4)
  - BLOOD CREATININE INCREASED [None]
  - COMA [None]
  - ENCEPHALOPATHY [None]
  - LACTIC ACIDOSIS [None]
